FAERS Safety Report 13598277 (Version 1)
Quarter: 2017Q2

REPORT INFORMATION
  Report Type: Spontaneous
  Country: US (occurrence: US)
  Receive Date: 20170531
  Receipt Date: 20170531
  Transmission Date: 20170830
  Serious: Yes (Other)
  Sender: FDA-Public Use
  Company Number: US-APOTEX-2017AP012419

PATIENT
  Age: 51 Year
  Sex: Female

DRUGS (3)
  1. PAROXETINE. [Suspect]
     Active Substance: PAROXETINE
     Indication: ANXIETY
     Dosage: 20 MG, UNK
     Route: 065
  2. PAROXETINE. [Suspect]
     Active Substance: PAROXETINE
     Indication: NIGHT SWEATS
  3. PAROXETINE. [Suspect]
     Active Substance: PAROXETINE
     Indication: HOT FLUSH

REACTIONS (19)
  - Libido decreased [Unknown]
  - Nausea [Unknown]
  - Bone pain [Unknown]
  - Disturbance in attention [Unknown]
  - Headache [Unknown]
  - Gait disturbance [Unknown]
  - Weight increased [Unknown]
  - Nightmare [Unknown]
  - Arthralgia [Unknown]
  - Tachyphrenia [Unknown]
  - Sleep disorder [Unknown]
  - Drug withdrawal syndrome [Unknown]
  - Mental impairment [Unknown]
  - Drug dose omission [Unknown]
  - Dizziness [Unknown]
  - Insomnia [Unknown]
  - Arthritis [Unknown]
  - Abnormal dreams [Unknown]
  - Fatigue [Unknown]
